FAERS Safety Report 11202889 (Version 1)
Quarter: 2015Q2

REPORT INFORMATION
  Report Type: Spontaneous
  Country: US (occurrence: None)
  Receive Date: 20150618
  Receipt Date: 20150618
  Transmission Date: 20150821
  Serious: Yes (Hospitalization)
  Sender: FDA-Public Use
  Company Number: None

PATIENT
  Age: 84 Year
  Sex: Male
  Weight: 130.3 kg

DRUGS (2)
  1. GABAPENTIN. [Suspect]
     Active Substance: GABAPENTIN
     Indication: OSTEOARTHRITIS
     Route: 048
     Dates: start: 20120811, end: 20120811
  2. ACETAMINOPHEN/OXYCODONE [Suspect]
     Active Substance: ACETAMINOPHEN\OXYCODONE HYDROCHLORIDE
     Route: 048
     Dates: start: 20120811, end: 20120811

REACTIONS (4)
  - Mental status changes [None]
  - Disorientation [None]
  - Asthenia [None]
  - Delirium [None]

NARRATIVE: CASE EVENT DATE: 20120811
